FAERS Safety Report 10018429 (Version 1)
Quarter: 2014Q1

REPORT INFORMATION
  Report Type: Spontaneous
  Country: US (occurrence: US)
  Receive Date: 20140318
  Receipt Date: 20140318
  Transmission Date: 20141002
  Serious: Yes (Other)
  Sender: FDA-Public Use
  Company Number: US-AMGEN-USASP2014018007

PATIENT
  Age: 55 Year
  Sex: Male

DRUGS (1)
  1. SENSIPAR [Suspect]
     Indication: PRODUCT USED FOR UNKNOWN INDICATION
     Route: 065

REACTIONS (2)
  - Jejunostomy [Unknown]
  - Renal transplant [Unknown]
